FAERS Safety Report 5356149-2 (Version None)
Quarter: 2007Q2

REPORT INFORMATION
  Report Type: 
  Country: None (occurrence: None)
  Receive Date: 20070612
  Receipt Date: 20070604
  Transmission Date: 20071010
  Serious: Yes (Other)
  Sender: FDA-Public Use
  Company Number: JP-PFIZER INC-2007046075

PATIENT
  Age: 52 Year
  Sex: Male

DRUGS (2)
  1. LIPITOR [Suspect]
     Route: 048
     Dates: start: 20051001, end: 20051101
  2. DRUG, UNSPECIFIED [Suspect]

REACTIONS (1)
  - OCULOMUCOCUTANEOUS SYNDROME [None]
